FAERS Safety Report 20616204 (Version 1)
Quarter: 2022Q1

REPORT INFORMATION
  Report Type: Spontaneous
  Country: US (occurrence: None)
  Receive Date: 20220319
  Receipt Date: 20220319
  Transmission Date: 20220424
  Serious: Yes (Other)
  Sender: FDA-Public Use
  Company Number: None

PATIENT
  Age: 77 Year
  Sex: Male
  Weight: 51.71 kg

DRUGS (6)
  1. DALVANCE [Suspect]
     Active Substance: DALBAVANCIN
     Indication: Postoperative wound infection
     Dosage: FREQUENCY : ONCE;?
     Route: 042
     Dates: start: 20211104, end: 20211111
  2. DALVANCE [Suspect]
     Active Substance: DALBAVANCIN
     Dosage: FREQUENCY : ONCE;?
     Route: 042
  3. UNSPECIFIED INGREDIENT [Concomitant]
     Active Substance: UNSPECIFIED INGREDIENT
  4. UNSPECIFIED INGREDIENT [Concomitant]
     Active Substance: UNSPECIFIED INGREDIENT
  5. VITAMINS [Concomitant]
     Active Substance: VITAMINS
  6. VITAMIN B12 [Concomitant]
     Active Substance: CYANOCOBALAMIN

REACTIONS (2)
  - Rash [None]
  - Skin disorder [None]

NARRATIVE: CASE EVENT DATE: 20211112
